FAERS Safety Report 5910857-0 (Version None)
Quarter: 2008Q4

REPORT INFORMATION
  Report Type: 
  Country: None (occurrence: None)
  Receive Date: 20081007
  Receipt Date: 20080527
  Transmission Date: 20090506
  Serious: No
  Sender: FDA-Public Use
  Company Number: US-ASTRAZENECA-2008UW10710

PATIENT
  Age: 87 Year
  Sex: Female
  Weight: 61.2 kg

DRUGS (4)
  1. ARIMIDEX [Suspect]
     Indication: BREAST NEOPLASM
     Route: 048
  2. HYDRALAZINE HCL [Concomitant]
  3. ATENOLOL [Concomitant]
  4. COZAAR [Concomitant]

REACTIONS (3)
  - FEELING ABNORMAL [None]
  - FEELING HOT [None]
  - HYPERHIDROSIS [None]
